FAERS Safety Report 4516316-4 (Version None)
Quarter: 2004Q4

REPORT INFORMATION
  Report Type: 
  Country: None (occurrence: None)
  Receive Date: 20041202
  Receipt Date: 20041020
  Transmission Date: 20050328
  Serious: Yes (Disabling, Other)
  Sender: FDA-Public Use
  Company Number: PHFR2004GB03923

PATIENT
  Age: 59 Year
  Sex: Female

DRUGS (4)
  1. CITALOPRAM [Concomitant]
     Dates: start: 20040101, end: 20041101
  2. BENDROFLUAZIDE [Concomitant]
     Route: 048
  3. ROFECOXIB [Concomitant]
     Route: 048
     Dates: start: 20040101, end: 20040901
  4. CLOZARIL [Suspect]
     Indication: SCHIZOPHRENIA
     Dosage: UNK, UNK
     Route: 048
     Dates: start: 20020805

REACTIONS (1)
  - ARTHRITIS [None]
